FAERS Safety Report 7488275-6 (Version None)
Quarter: 2011Q2

REPORT INFORMATION
  Report Type: 
  Country: None (occurrence: None)
  Receive Date: 20110511
  Receipt Date: 20110503
  Transmission Date: 20111010
  Serious: Yes (Other)
  Sender: FDA-Public Use
  Company Number: ACO_23048_2011

PATIENT
  Age: 49 Year
  Sex: Female
  Weight: 83.4 kg

DRUGS (22)
  1. AMITZA (LUBIPROSTONE) [Concomitant]
  2. SANCTURA [Concomitant]
  3. SEROQUEL [Concomitant]
  4. ALTABAX (RETAPAMULIN) [Concomitant]
  5. AMPYRA [Suspect]
     Indication: GAIT DISTURBANCE
     Dosage: 10 MG, BID, ORAL
     Route: 048
     Dates: start: 20110201, end: 20110401
  6. GABAPENTIN [Concomitant]
  7. TOPIRAMATE [Concomitant]
  8. LISINOPRIL [Concomitant]
  9. METOPROLOL TARTRATE [Concomitant]
  10. OMEPRAZOLE [Concomitant]
  11. HYDROXYZINE HCL [Concomitant]
  12. SERTRALINE HYDROCHLORIDE [Concomitant]
  13. OXYCODONE HCL [Concomitant]
  14. UREA (UREA) [Concomitant]
  15. LORATADINE [Concomitant]
  16. TIZANIDINE (TIZANIDINE) [Concomitant]
  17. FUROSEMIDE [Concomitant]
  18. PERCOCET [Concomitant]
  19. SILVADENE [Concomitant]
  20. CLINDAMYCIN [Concomitant]
  21. ZEGERID (OMEPRAZOLE) [Concomitant]
  22. AVONEX [Concomitant]

REACTIONS (2)
  - OEDEMA PERIPHERAL [None]
  - OESOPHAGEAL OEDEMA [None]
